FAERS Safety Report 10080851 (Version 1)
Quarter: 2014Q2

REPORT INFORMATION
  Report Type: Spontaneous
  Country: BR (occurrence: BR)
  Receive Date: 20140416
  Receipt Date: 20140416
  Transmission Date: 20141212
  Serious: Yes (Other)
  Sender: FDA-Public Use
  Company Number: PHHY2014BR044112

PATIENT
  Age: 48 Year
  Sex: Male
  Weight: 65 kg

DRUGS (5)
  1. TEGRETOL [Suspect]
     Indication: SPINAL MUSCULAR ATROPHY
     Dosage: 1 DF, DAILY
     Route: 048
  2. TEGRETOL [Suspect]
     Indication: OFF LABEL USE
     Dosage: 2 DF, ( STARTED TO USE 2 TABLETS)
     Route: 048
  3. TEGRETOL [Suspect]
     Indication: SPINAL MUSCULAR ATROPHY
     Dosage: 1 DF, (400 MG) DAILY
     Route: 048
  4. TEGRETOL [Suspect]
     Indication: OFF LABEL USE
  5. TORVAL [Suspect]
     Dosage: 2 DF, (300 MG) DAILY
     Route: 048

REACTIONS (8)
  - Petit mal epilepsy [Recovered/Resolved]
  - Syncope [Recovered/Resolved]
  - Convulsion [Recovered/Resolved]
  - Nervousness [Recovered/Resolved]
  - Stress [Recovered/Resolved]
  - Gait disturbance [Not Recovered/Not Resolved]
  - Expired product administered [Unknown]
  - Movement disorder [Not Recovered/Not Resolved]
